FAERS Safety Report 14617623 (Version 1)
Quarter: 2018Q1

REPORT INFORMATION
  Report Type: Report from Study
  Country: US (occurrence: US)
  Receive Date: 20180309
  Receipt Date: 20180309
  Transmission Date: 20180509
  Serious: Yes (Hospitalization)
  Sender: FDA-Public Use
  Company Number: US-JNJFOC-20180309207

PATIENT
  Age: 53 Year
  Sex: Male

DRUGS (5)
  1. ULORIC [Concomitant]
     Active Substance: FEBUXOSTAT
  2. ACYCLOVIR. [Concomitant]
     Active Substance: ACYCLOVIR
  3. PERCOCET [Concomitant]
     Active Substance: ACETAMINOPHEN\OXYCODONE HYDROCHLORIDE
  4. SULFAMETHOXAZOLE [Concomitant]
     Active Substance: SULFAMETHOXAZOLE
  5. IMBRUVICA [Suspect]
     Active Substance: IBRUTINIB
     Indication: B-CELL PROLYMPHOCYTIC LEUKAEMIA
     Route: 048
     Dates: start: 20180206

REACTIONS (4)
  - Adverse reaction [Recovered/Resolved]
  - Colonoscopy [Recovered/Resolved]
  - Off label use [Unknown]
  - Product use in unapproved indication [Unknown]

NARRATIVE: CASE EVENT DATE: 20180206
